FAERS Safety Report 8046397-5 (Version None)
Quarter: 2012Q1

REPORT INFORMATION
  Report Type: 
  Country: None (occurrence: None)
  Receive Date: 20120113
  Receipt Date: 20120104
  Transmission Date: 20120608
  Serious: Yes (Other)
  Sender: FDA-Public Use
  Company Number: US-ASTRAZENECA-2010SE26983

PATIENT
  Age: 81 Year
  Sex: Male

DRUGS (3)
  1. NEXIUM [Suspect]
     Route: 048
  2. CRESTOR [Suspect]
     Route: 048
  3. CASODEX [Suspect]
     Route: 048

REACTIONS (5)
  - DRUG DOSE OMISSION [None]
  - WRONG DRUG ADMINISTERED [None]
  - GASTROOESOPHAGEAL REFLUX DISEASE [None]
  - CONFUSIONAL STATE [None]
  - CHOLELITHIASIS [None]
